FAERS Safety Report 12460425 (Version 2)
Quarter: 2016Q3

REPORT INFORMATION
  Report Type: Report from Study
  Country: CA (occurrence: CA)
  Receive Date: 20160613
  Receipt Date: 20160805
  Transmission Date: 20161109
  Serious: Yes (Other)
  Sender: FDA-Public Use
  Company Number: CA-JNJFOC-20160508648

PATIENT
  Age: 54 Year
  Sex: Female
  Weight: 123.7 kg

DRUGS (6)
  1. REMICADE [Suspect]
     Active Substance: INFLIXIMAB
     Indication: COLITIS ULCERATIVE
     Route: 042
     Dates: start: 20160802
  2. REMICADE [Suspect]
     Active Substance: INFLIXIMAB
     Indication: COLITIS ULCERATIVE
     Route: 042
     Dates: start: 20160606
  3. REMICADE [Suspect]
     Active Substance: INFLIXIMAB
     Indication: COLITIS ULCERATIVE
     Route: 042
     Dates: start: 20160509
  4. REMICADE [Suspect]
     Active Substance: INFLIXIMAB
     Indication: COLITIS ULCERATIVE
     Dosage: 8/52
     Route: 042
  5. REMICADE [Suspect]
     Active Substance: INFLIXIMAB
     Indication: COLITIS ULCERATIVE
     Route: 042
  6. REMICADE [Suspect]
     Active Substance: INFLIXIMAB
     Indication: COLITIS ULCERATIVE
     Dosage: INDUCTION DOSE
     Route: 042
     Dates: start: 20160427

REACTIONS (7)
  - General physical health deterioration [Not Recovered/Not Resolved]
  - Haematochezia [Unknown]
  - Frequent bowel movements [Unknown]
  - Diarrhoea [Not Recovered/Not Resolved]
  - Haematochezia [Not Recovered/Not Resolved]
  - Pain [Not Recovered/Not Resolved]
  - Fatigue [Not Recovered/Not Resolved]

NARRATIVE: CASE EVENT DATE: 2016
